FAERS Safety Report 5140857-2 (Version None)
Quarter: 2006Q4

REPORT INFORMATION
  Report Type: 
  Country: None (occurrence: None)
  Receive Date: 20061025
  Receipt Date: 20061012
  Transmission Date: 20070319
  Serious: Yes (Other)
  Sender: FDA-Public Use
  Company Number: ALK_0030_2006

PATIENT
  Age: 52 Year
  Sex: Female
  Weight: 81.6475 kg

DRUGS (10)
  1. VIVITROL [Suspect]
     Indication: ALCOHOLISM
     Dosage: 380 MG QM IM
     Route: 030
     Dates: start: 20060925, end: 20060925
  2. TOPROL-XL [Concomitant]
  3. TRAMET [Concomitant]
  4. HYDROCHLOROTHIAZIDE [Concomitant]
  5. ALPRAZOLAM [Concomitant]
  6. TRANIDALE  HCL [Concomitant]
  7. LYRICA [Concomitant]
  8. METHOCARBAMOL [Concomitant]
  9. TORSEMIDE [Concomitant]
  10. POTASSIUM ACETATE [Concomitant]

REACTIONS (10)
  - ARTHRALGIA [None]
  - ASTHENIA [None]
  - BEDRIDDEN [None]
  - CONVULSION [None]
  - DIARRHOEA [None]
  - DRUG INEFFECTIVE [None]
  - NAUSEA [None]
  - ORAL INTAKE REDUCED [None]
  - PAIN [None]
  - VOMITING [None]
